FAERS Safety Report 13451385 (Version 8)
Quarter: 2018Q2

REPORT INFORMATION
  Report Type: Spontaneous
  Country: JP (occurrence: JP)
  Receive Date: 20170418
  Receipt Date: 20180516
  Transmission Date: 20180711
  Serious: Yes (Other)
  Sender: FDA-Public Use
  Company Number: JP-009507513-1704JPN001234J

PATIENT
  Age: 67 Year
  Sex: Female
  Weight: 46 kg

DRUGS (3)
  1. KEYTRUDA [Suspect]
     Active Substance: PEMBROLIZUMAB
     Indication: LUNG ADENOCARCINOMA STAGE IV
     Dosage: 200 MG, Q3W
     Route: 041
     Dates: start: 20170407, end: 20170614
  2. CIBENOL [Concomitant]
     Active Substance: CIFENLINE
     Dosage: 100 MG, TID
     Route: 048
     Dates: start: 20170413
  3. HALFDIGOXIN [Concomitant]
     Active Substance: DIGOXIN
     Dosage: UNK UNK, QD
     Route: 048
     Dates: start: 20170419

REACTIONS (7)
  - Hyperuricaemia [Recovered/Resolved]
  - Neuropathy peripheral [Not Recovered/Not Resolved]
  - Hyperkalaemia [Recovered/Resolved]
  - Malaise [Unknown]
  - Palpitations [Recovering/Resolving]
  - Nausea [Recovering/Resolving]
  - Infusion related reaction [Recovered/Resolved]

NARRATIVE: CASE EVENT DATE: 20170412
